FAERS Safety Report 4317429-2 (Version None)
Quarter: 2004Q1

REPORT INFORMATION
  Report Type: 
  Country: None (occurrence: None)
  Receive Date: 20040312
  Receipt Date: 20040308
  Transmission Date: 20041129
  Serious: Yes (Hospitalization)
  Sender: FDA-Public Use
  Company Number: ENT 2004-0040

PATIENT
  Age: 96 Year
  Sex: Male

DRUGS (5)
  1. COMTESS (ENTACAPONE) [Suspect]
     Indication: PARKINSON'S DISEASE
     Dosage: 400 MG (200 MG, 2 IN 1 D) ORAL
     Route: 048
  2. ASPIRIN [Concomitant]
  3. CO-CARELDOPA [Concomitant]
  4. TRIMETHOPRIM [Concomitant]
  5. BENZHEXOL [Concomitant]

REACTIONS (2)
  - HYPOTENSION [None]
  - SUPRAVENTRICULAR TACHYCARDIA [None]
